FAERS Safety Report 21024319 (Version 1)
Quarter: 2022Q2

REPORT INFORMATION
  Report Type: Spontaneous
  Country: JP (occurrence: JP)
  Receive Date: 20220629
  Receipt Date: 20220629
  Transmission Date: 20220721
  Serious: Yes (Other)
  Sender: FDA-Public Use
  Company Number: A202200417-001

PATIENT
  Age: 69 Year
  Sex: Male

DRUGS (12)
  1. BENDAMUSTINE HYDROCHLORIDE [Suspect]
     Active Substance: BENDAMUSTINE HYDROCHLORIDE
     Indication: Follicular lymphoma
     Dosage: UNK (CYCLE 1 GB THERAPY)
     Route: 042
  2. BENDAMUSTINE HYDROCHLORIDE [Suspect]
     Active Substance: BENDAMUSTINE HYDROCHLORIDE
     Dosage: UNK (CYCLE 2 GB THERAPY)
     Route: 042
  3. BENDAMUSTINE HYDROCHLORIDE [Suspect]
     Active Substance: BENDAMUSTINE HYDROCHLORIDE
     Dosage: UNK (CYCLE 3 GB THERAPY)
     Route: 042
  4. BENDAMUSTINE HYDROCHLORIDE [Suspect]
     Active Substance: BENDAMUSTINE HYDROCHLORIDE
     Dosage: UNK (CYCLE 4 GB THERAPY)
     Route: 042
  5. BENDAMUSTINE HYDROCHLORIDE [Suspect]
     Active Substance: BENDAMUSTINE HYDROCHLORIDE
     Dosage: UNK (CYCLE 5 GB THERAPY)
     Route: 042
  6. BENDAMUSTINE HYDROCHLORIDE [Suspect]
     Active Substance: BENDAMUSTINE HYDROCHLORIDE
     Dosage: UNK (CYCLE 6 GB THERAPY)
     Route: 042
  7. GAZYVA [Concomitant]
     Active Substance: OBINUTUZUMAB
     Indication: Follicular lymphoma
     Dosage: UNK (CYCLE 1 GB THERAPY)
     Route: 042
  8. GAZYVA [Concomitant]
     Active Substance: OBINUTUZUMAB
     Dosage: UNK (CYCLE 2 GB THERAPY)
     Route: 042
  9. GAZYVA [Concomitant]
     Active Substance: OBINUTUZUMAB
     Dosage: UNK (CYCLE 3 GB THERAPY)
     Route: 042
  10. GAZYVA [Concomitant]
     Active Substance: OBINUTUZUMAB
     Dosage: UNK (CYCLE 4 GB THERAPY)
     Route: 042
  11. GAZYVA [Concomitant]
     Active Substance: OBINUTUZUMAB
     Dosage: UNK (CYCLE 5 GB THERAPY)
     Route: 042
  12. GAZYVA [Concomitant]
     Active Substance: OBINUTUZUMAB
     Dosage: UNK (CYCLE 6 GB THERAPY)
     Route: 042

REACTIONS (6)
  - Primary adrenal insufficiency [Recovering/Resolving]
  - Cytomegalovirus enterocolitis [Recovering/Resolving]
  - Nausea [Unknown]
  - Abdominal pain [Unknown]
  - Hyponatraemia [Unknown]
  - Cytomegalovirus test positive [Unknown]
